FAERS Safety Report 6432462-2 (Version None)
Quarter: 2009Q4

REPORT INFORMATION
  Report Type: 
  Country: None (occurrence: None)
  Receive Date: 20091109
  Receipt Date: 20091008
  Transmission Date: 20100525
  Serious: No
  Sender: FDA-Public Use
  Company Number: US-BAYER-200936060NA

PATIENT
  Age: 39 Year
  Sex: Female
  Weight: 77 kg

DRUGS (2)
  1. YASMIN [Suspect]
     Indication: CONTRACEPTION
     Dosage: TOOK PRIOR TO BIRTH OF CHILD (NOS)
  2. YAZ [Suspect]
     Indication: CONTRACEPTION
     Dates: start: 20090701

REACTIONS (4)
  - ACNE [None]
  - HEADACHE [None]
  - IRRITABILITY [None]
  - SEBORRHOEA [None]
